FAERS Safety Report 17111464 (Version 1)
Quarter: 2019Q4

REPORT INFORMATION
  Report Type: Spontaneous
  Country: FI (occurrence: FI)
  Receive Date: 20191204
  Receipt Date: 20191204
  Transmission Date: 20200122
  Serious: Yes (Other)
  Sender: FDA-Public Use
  Company Number: FI-JNJFOC-20191135509

PATIENT
  Age: 67 Year
  Sex: Female

DRUGS (3)
  1. THYROXIN [Concomitant]
     Active Substance: LEVOTHYROXINE
     Indication: HYPOTHYROIDISM
     Route: 048
  2. TREMFYA [Suspect]
     Active Substance: GUSELKUMAB
     Indication: PSORIASIS
     Route: 058
     Dates: start: 20190705, end: 20191008
  3. PROPRAL [Concomitant]
     Indication: TREMOR
     Route: 065

REACTIONS (2)
  - Cutaneous T-cell lymphoma [Not Recovered/Not Resolved]
  - Parapsoriasis [Not Recovered/Not Resolved]

NARRATIVE: CASE EVENT DATE: 201908
